FAERS Safety Report 21025999 (Version 5)
Quarter: 2022Q3

REPORT INFORMATION
  Report Type: Report from Study
  Country: BR (occurrence: BR)
  Receive Date: 20220630
  Receipt Date: 20220902
  Transmission Date: 20221027
  Serious: Yes (Hospitalization, Other)
  Sender: FDA-Public Use
  Company Number: BR-JNJFOC-20220656360

PATIENT
  Age: 68 Year
  Sex: Male
  Weight: 82 kg

DRUGS (3)
  1. INFLIXIMAB [Suspect]
     Active Substance: INFLIXIMAB
     Indication: Crohn^s disease
     Route: 041
     Dates: start: 202108
  2. REMICADE [Suspect]
     Active Substance: INFLIXIMAB
     Indication: Crohn^s disease
     Route: 041
     Dates: start: 20220510
  3. COVID-19 VACCINE NOS [Suspect]
     Active Substance: COVID-19 VACCINE NOS

REACTIONS (6)
  - Crohn^s disease [Not Recovered/Not Resolved]
  - Cytomegalovirus infection [Unknown]
  - Asthma [Unknown]
  - Influenza [Recovered/Resolved]
  - Bacterial infection [Unknown]
  - COVID-19 [Unknown]
